FAERS Safety Report 7104170-6 (Version None)
Quarter: 2010Q4

REPORT INFORMATION
  Report Type: 
  Country: None (occurrence: None)
  Receive Date: 20101115
  Receipt Date: 20100604
  Transmission Date: 20110411
  Serious: Yes (Other)
  Sender: FDA-Public Use
  Company Number: US-ALLERGAN-1007349US

PATIENT
  Age: 68 Year
  Sex: Female

DRUGS (1)
  1. BOTOXA? [Suspect]
     Indication: PARKINSON'S DISEASE
     Dosage: UNK
     Dates: start: 20100301, end: 20100301

REACTIONS (2)
  - DYSPHAGIA [None]
  - DYSPNOEA [None]
